FAERS Safety Report 10424886 (Version 1)
Quarter: 2014Q3

REPORT INFORMATION
  Report Type: Spontaneous
  Country: US (occurrence: US)
  Receive Date: 20140902
  Receipt Date: 20140902
  Transmission Date: 20150326
  Serious: Yes (Other)
  Sender: FDA-Public Use
  Company Number: US-009507513-1409USA000939

PATIENT
  Age: 86 Year
  Sex: Female

DRUGS (1)
  1. COPPERTONE WATER BABIES SPF 50 [Suspect]
     Active Substance: AVOBENZONE\HOMOSALATE\OCTISALATE\OCTOCRYLENE\OXYBENZONE
     Indication: BASAL CELL CARCINOMA
     Dosage: UNK, UNKNOWN
     Route: 061

REACTIONS (2)
  - Unevaluable event [Unknown]
  - Skin cancer [Unknown]
